FAERS Safety Report 19203816 (Version 2)
Quarter: 2021Q4

REPORT INFORMATION
  Report Type: Spontaneous
  Country: US (occurrence: None)
  Receive Date: 20210501
  Receipt Date: 20211216
  Transmission Date: 20220303
  Serious: Yes (Other)
  Sender: FDA-Public Use
  Company Number: 2021A363306

PATIENT
  Sex: Female
  Weight: 145.2 kg

DRUGS (35)
  1. NEXIUM [Suspect]
     Active Substance: ESOMEPRAZOLE MAGNESIUM
     Route: 048
     Dates: start: 2000, end: 2009
  2. PREVACID [Suspect]
     Active Substance: LANSOPRAZOLE
     Route: 065
     Dates: start: 2000, end: 2009
  3. DOXEPIN [Concomitant]
     Active Substance: DOXEPIN
  4. ENALAPRIL [Concomitant]
     Active Substance: ENALAPRIL
  5. FUROSEMIDE [Concomitant]
     Active Substance: FUROSEMIDE
  6. NITROSTAT [Concomitant]
     Active Substance: NITROGLYCERIN
  7. SPIRNOLACTONE [Concomitant]
  8. GLYBURIDE [Concomitant]
     Active Substance: GLYBURIDE
  9. METFORMIN [Concomitant]
     Active Substance: METFORMIN HYDROCHLORIDE
  10. ISOSORBIDE [Concomitant]
     Active Substance: ISOSORBIDE
  11. METOPROLOL TARTRATE [Concomitant]
     Active Substance: METOPROLOL TARTRATE
  12. PREDNISONE [Concomitant]
     Active Substance: PREDNISONE
  13. DICLOFENAC [Concomitant]
     Active Substance: DICLOFENAC
  14. IMDUR [Concomitant]
     Active Substance: ISOSORBIDE MONONITRATE
  15. NITROGLYCERIN [Concomitant]
     Active Substance: NITROGLYCERIN
  16. LASIX [Concomitant]
     Active Substance: FUROSEMIDE
  17. ASPIRIN [Concomitant]
     Active Substance: ASPIRIN
  18. LOPRESSOR [Concomitant]
     Active Substance: METOPROLOL TARTRATE
  19. GLUCOVANCE [Concomitant]
     Active Substance: GLYBURIDE\METFORMIN HYDROCHLORIDE
  20. IRBESARTAN [Concomitant]
     Active Substance: IRBESARTAN
  21. TYLENOL [Concomitant]
     Active Substance: ACETAMINOPHEN
  22. HYDROCODONE [Concomitant]
     Active Substance: HYDROCODONE
  23. ULTRAM [Concomitant]
     Active Substance: TRAMADOL HYDROCHLORIDE
  24. ONDANSETRON [Concomitant]
     Active Substance: ONDANSETRON
  25. LOVENOX [Concomitant]
     Active Substance: ENOXAPARIN SODIUM
  26. KETOROLAC [Concomitant]
     Active Substance: KETOROLAC TROMETHAMINE
  27. NITROFURANTOIN [Concomitant]
     Active Substance: NITROFURANTOIN
  28. ATENOLOL [Concomitant]
     Active Substance: ATENOLOL
  29. RANITIDINE [Concomitant]
     Active Substance: RANITIDINE
  30. SERTRALINE [Concomitant]
     Active Substance: SERTRALINE HYDROCHLORIDE
  31. METOLAZONE [Concomitant]
     Active Substance: METOLAZONE
  32. TAMIFLU [Concomitant]
     Active Substance: OSELTAMIVIR PHOSPHATE
  33. CYCLOBENZAPRINE [Concomitant]
     Active Substance: CYCLOBENZAPRINE
  34. AMITRIPTYLINE [Concomitant]
     Active Substance: AMITRIPTYLINE
  35. CHLORTHALIDONE [Concomitant]
     Active Substance: CHLORTHALIDONE

REACTIONS (2)
  - Chronic kidney disease [Unknown]
  - Acute kidney injury [Unknown]
